FAERS Safety Report 18686613 (Version 2)
Quarter: 2022Q1

REPORT INFORMATION
  Report Type: Spontaneous
  Country: US (occurrence: US)
  Receive Date: 20201231
  Receipt Date: 20220314
  Transmission Date: 20220423
  Serious: Yes (Other)
  Sender: FDA-Public Use
  Company Number: US-GLAXOSMITHKLINE-US2020GSK258056

PATIENT
  Sex: Male

DRUGS (7)
  1. RANITIDINE [Suspect]
     Active Substance: RANITIDINE
     Indication: Dyspepsia
     Dosage: OCCASIONAL|UNKNOWN AT THIS TIME|BOTH
     Route: 065
     Dates: start: 198801, end: 201601
  2. ZANTAC [Suspect]
     Active Substance: RANITIDINE HYDROCHLORIDE
     Indication: Dyspepsia
     Dosage: OCCASIONAL|UNKNOWN AT THIS TIME|BOTH
     Route: 065
     Dates: start: 198801, end: 201601
  3. ZANTAC [Suspect]
     Active Substance: RANITIDINE HYDROCHLORIDE
     Indication: Dyspepsia
     Dosage: OCCASIONAL|UNKNOWN AT THIS TIME|BOTH
     Route: 065
     Dates: start: 198801, end: 201601
  4. RANITIDINE [Suspect]
     Active Substance: RANITIDINE
     Indication: Dyspepsia
     Dosage: OCCASIONAL|UNKNOWN AT THIS TIME|BOTH
     Route: 065
     Dates: start: 198801, end: 201601
  5. RANITIDINE [Suspect]
     Active Substance: RANITIDINE
     Indication: Dyspepsia
     Dosage: OCCASIONAL|UNKNOWN AT THIS TIME|BOTH
     Route: 065
     Dates: start: 198801, end: 201601
  6. RANITIDINE [Suspect]
     Active Substance: RANITIDINE
     Indication: Dyspepsia
     Dosage: OCCASIONAL|UNKNOWN AT THIS TIME|BOTH
     Route: 065
     Dates: start: 198801, end: 201601
  7. ZANTAC [Suspect]
     Active Substance: RANITIDINE HYDROCHLORIDE
     Indication: Dyspepsia
     Dosage: OCCASIONAL|UNKNOWN AT THIS TIME|BOTH
     Route: 065
     Dates: start: 198801, end: 201601

REACTIONS (3)
  - Lung neoplasm malignant [Unknown]
  - Pancreatic carcinoma [Unknown]
  - Prostate cancer [Unknown]
